FAERS Safety Report 9879328 (Version 1)
Quarter: 2014Q1

REPORT INFORMATION
  Report Type: Spontaneous
  Country: US (occurrence: US)
  Receive Date: 20140206
  Receipt Date: 20140206
  Transmission Date: 20141002
  Serious: No
  Sender: FDA-Public Use
  Company Number: US-BAYER-2014-017968

PATIENT
  Age: 56 Year
  Sex: Male

DRUGS (10)
  1. AVELOX [Suspect]
     Indication: BRONCHITIS
     Dosage: 400 MG, QD
     Route: 048
     Dates: start: 20140121, end: 20140121
  2. ACTOS [Concomitant]
  3. AMLODIPINE [Concomitant]
  4. VICTOZA [Concomitant]
  5. GLUMETZA [Concomitant]
  6. ZETIA [Concomitant]
  7. LOSARTAN POTASSIUM W/HYDROCHLOROTHIAZIDE [Concomitant]
  8. FENTANYL [Concomitant]
  9. CELEBREX [Concomitant]
  10. RABEPRAZOLE SODIUM [Concomitant]

REACTIONS (4)
  - Hypersensitivity [Recovering/Resolving]
  - Pruritus [Recovering/Resolving]
  - Erythema [Recovering/Resolving]
  - Urticaria [Recovering/Resolving]
